FAERS Safety Report 8589917-4 (Version None)
Quarter: 2012Q3

REPORT INFORMATION
  Report Type: 
  Country: None (occurrence: None)
  Receive Date: 20120813
  Receipt Date: 20120731
  Transmission Date: 20120928
  Serious: Yes (Hospitalization)
  Sender: FDA-Public Use
  Company Number: JP-ACTELION-A-CH2010-42038

PATIENT
  Age: 76 Year
  Sex: Female
  Weight: 40 kg

DRUGS (8)
  1. TRACLEER [Suspect]
     Dosage: 125 MG, BID
     Route: 048
     Dates: start: 20100702
  2. FUROSEMIDE [Concomitant]
  3. ALENDRONATE SODIUM [Concomitant]
  4. TRACLEER [Suspect]
     Dosage: 93.75 MG, BID
     Route: 048
     Dates: start: 20100604, end: 20100701
  5. OXYGEN [Concomitant]
  6. TRACLEER [Suspect]
     Dosage: 62.5 MG, QD
     Route: 048
     Dates: start: 20100312, end: 20100325
  7. PREDNISOLONE [Concomitant]
  8. TRACLEER [Suspect]
     Indication: PULMONARY ARTERIAL HYPERTENSION
     Dosage: 62.5 MG, BID
     Route: 048
     Dates: start: 20100326, end: 20100603

REACTIONS (3)
  - PYREXIA [None]
  - SKIN ULCER [None]
  - PULMONARY HYPERTENSION [None]
